FAERS Safety Report 25529464 (Version 2)
Quarter: 2025Q3

REPORT INFORMATION
  Report Type: Spontaneous
  Country: EU (occurrence: EU)
  Receive Date: 20250708
  Receipt Date: 20250709
  Transmission Date: 20251020
  Serious: Yes (Hospitalization, Other)
  Sender: NOVARTIS
  Company Number: None

PATIENT
  Age: 41 Year
  Sex: Male

DRUGS (1)
  1. VOTRIENT [Suspect]
     Active Substance: PAZOPANIB HYDROCHLORIDE
     Indication: Solitary fibrous tumour
     Route: 048
     Dates: start: 20250113, end: 20250319

REACTIONS (1)
  - Tooth abscess [Recovered/Resolved with Sequelae]

NARRATIVE: CASE EVENT DATE: 20250319
